FAERS Safety Report 5626126-2 (Version None)
Quarter: 2008Q1

REPORT INFORMATION
  Report Type: 
  Country: None (occurrence: None)
  Receive Date: 20080214
  Receipt Date: 20080201
  Transmission Date: 20080703
  Serious: Yes (Hospitalization, Other)
  Sender: FDA-Public Use
  Company Number: US-AMGEN-QUU263432

PATIENT
  Age: 72 Year
  Sex: Female

DRUGS (2)
  1. ARANESP [Suspect]
     Indication: RENAL FAILURE CHRONIC
     Route: 058
     Dates: start: 20060901
  2. PLAVIX [Concomitant]
     Dates: end: 20070101

REACTIONS (3)
  - HAEMORRHOIDAL HAEMORRHAGE [None]
  - IRON DEFICIENCY [None]
  - THERAPEUTIC RESPONSE DECREASED [None]
